FAERS Safety Report 8881655 (Version 1)
Quarter: 2012Q4

REPORT INFORMATION
  Report Type: 
  Country: JP (occurrence: JP)
  Receive Date: 20121102
  Receipt Date: 20121102
  Transmission Date: 20130627
  Serious: Yes (Death, Other)
  Sender: FDA-Public Use
  Company Number: PHHY2012JP098854

PATIENT
  Age: 10 Year
  Sex: Female
  Weight: 13.9 kg

DRUGS (3)
  1. METHYLPREDNISOLONE [Suspect]
  2. TACROLIMUS [Suspect]
     Route: 048
  3. TACROLIMUS [Suspect]
     Route: 042

REACTIONS (14)
  - Encephalitis [Fatal]
  - Pyrexia [Fatal]
  - Somnolence [Fatal]
  - Brain oedema [Fatal]
  - Aspergillosis [Fatal]
  - Aspergillus test positive [Fatal]
  - Human herpesvirus 6 infection [Fatal]
  - Roseolovirus test positive [Fatal]
  - Transplant rejection [Unknown]
  - Inflammation [Unknown]
  - Renal failure acute [Unknown]
  - Hepatic function abnormal [Unknown]
  - Jaundice [Unknown]
  - Drug level decreased [Unknown]
